FAERS Safety Report 22039133 (Version 1)
Quarter: 2023Q1

REPORT INFORMATION
  Report Type: Spontaneous
  Country: NO (occurrence: NO)
  Receive Date: 20230227
  Receipt Date: 20230227
  Transmission Date: 20230418
  Serious: Yes (Life-Threatening, Hospitalization)
  Sender: FDA-Public Use
  Company Number: None

PATIENT
  Age: 53 Year
  Sex: Female
  Weight: 59 kg

DRUGS (5)
  1. LETROZOLE [Suspect]
     Active Substance: LETROZOLE
     Indication: Breast cancer
     Dosage: STRENGTH: 2.5 MG
     Dates: start: 20221025, end: 20221104
  2. VITAMIN D3 [Concomitant]
     Active Substance: CHOLECALCIFEROL
     Dosage: STRENGTH: 20 MCG
  3. LEVOTHYROXINE SODIUM [Concomitant]
     Active Substance: LEVOTHYROXINE SODIUM
     Indication: Hypothyroidism
     Dosage: STRENGTH: 75 UG MICROGRAM(S), 1 TABLET DAILY
  4. NYCOPLUS MULTI [Concomitant]
  5. VITAMIN C [Concomitant]
     Active Substance: ASCORBIC ACID

REACTIONS (8)
  - Lip swelling [Unknown]
  - Liver disorder [Recovering/Resolving]
  - Abdominal pain [Recovering/Resolving]
  - Hypersensitivity [Recovered/Resolved]
  - Swelling face [Unknown]
  - Respiration abnormal [Unknown]
  - Swelling of eyelid [Unknown]
  - Throat tightness [Unknown]

NARRATIVE: CASE EVENT DATE: 20221104
